FAERS Safety Report 6107796-1 (Version None)
Quarter: 2009Q1

REPORT INFORMATION
  Report Type: 
  Country: None (occurrence: None)
  Receive Date: 20090309
  Receipt Date: 20090302
  Transmission Date: 20090719
  Serious: Yes (Other)
  Sender: FDA-Public Use
  Company Number: B0562399A

PATIENT
  Age: 34 Year
  Sex: Male

DRUGS (6)
  1. ALKERAN [Suspect]
     Indication: DRUG USE FOR UNKNOWN INDICATION
     Dosage: 140MGM PER DAY
     Route: 042
  2. RITUXIMAB [Concomitant]
     Route: 042
  3. RANIMUSTINE [Concomitant]
     Route: 042
  4. ETOPOSIDE [Concomitant]
     Route: 042
  5. CYTARABINE [Concomitant]
  6. ANTIRETROVIRAL MEDICATIONS [Concomitant]

REACTIONS (3)
  - DIARRHOEA [None]
  - FEBRILE NEUTROPENIA [None]
  - GASTROINTESTINAL DISORDER [None]
